FAERS Safety Report 5150517-X (Version None)
Quarter: 2006Q4

REPORT INFORMATION
  Report Type: 
  Country: None (occurrence: None)
  Receive Date: 20061114
  Receipt Date: 20061027
  Transmission Date: 20070319
  Serious: Yes (Disabling)
  Sender: FDA-Public Use
  Company Number: GB-SP-2006-02846

PATIENT
  Age: 69 Year
  Sex: Female

DRUGS (1)
  1. IMMUCYST [Suspect]
     Indication: BLADDER CANCER RECURRENT
     Route: 043
     Dates: start: 20050321

REACTIONS (3)
  - CONJUNCTIVITIS [None]
  - DYSPNOEA EXERTIONAL [None]
  - JOINT SWELLING [None]
